FAERS Safety Report 25599292 (Version 1)
Quarter: 2025Q3

REPORT INFORMATION
  Report Type: Spontaneous
  Country: CN (occurrence: CN)
  Receive Date: 20250724
  Receipt Date: 20250724
  Transmission Date: 20251020
  Serious: Yes (Other)
  Sender: BAXTER
  Company Number: None

PATIENT
  Age: 38 Year
  Sex: Female
  Weight: 63 kg

DRUGS (7)
  1. CYCLOPHOSPHAMIDE [Suspect]
     Active Substance: CYCLOPHOSPHAMIDE
     Indication: Breast cancer female
     Dosage: 0.85 G, QD, IVGTT DAY 1
     Route: 041
     Dates: start: 20250709, end: 20250709
  2. SODIUM CHLORIDE [Suspect]
     Active Substance: SODIUM CHLORIDE
     Dosage: 50 ML 0.9% INJECTION  WITH CYCLOPHOSPHAMIDE
     Route: 041
     Dates: start: 20250709, end: 20250709
  3. SODIUM CHLORIDE [Suspect]
     Active Substance: SODIUM CHLORIDE
     Dosage: 100 ML 0.9% INJECTION WITH EPIRUBICIN
     Route: 041
     Dates: start: 20250709, end: 20250709
  4. SODIUM CHLORIDE [Suspect]
     Active Substance: SODIUM CHLORIDE
     Dosage: 60 ML 0.9% INJECTION WITH PACITAXEL
     Route: 041
     Dates: start: 20250710, end: 20250710
  5. EPIRUBICIN HYDROCHLORIDE [Suspect]
     Active Substance: EPIRUBICIN HYDROCHLORIDE
     Indication: Breast cancer female
     Dosage: 120 MG, QD, DAY 1
     Route: 041
     Dates: start: 20250709, end: 20250709
  6. PACLITAXEL [Suspect]
     Active Substance: PACLITAXEL
     Indication: Breast cancer female
     Dosage: 0.3 G, QD, DAY 2
     Route: 041
     Dates: start: 20250710, end: 20250710
  7. WATER FOR INJECTION [Suspect]
     Active Substance: WATER
     Dosage: 50 ML WITH EPICUBICIN
     Route: 041
     Dates: start: 20250709, end: 20250709

REACTIONS (1)
  - Myelosuppression [Unknown]

NARRATIVE: CASE EVENT DATE: 20250716
